FAERS Safety Report 8232122-1 (Version None)
Quarter: 2012Q1

REPORT INFORMATION
  Report Type: 
  Country: None (occurrence: None)
  Receive Date: 20120323
  Receipt Date: 20120321
  Transmission Date: 20120608
  Serious: No
  Sender: FDA-Public Use
  Company Number: US-PFIZER INC-2012074717

PATIENT
  Sex: Female

DRUGS (9)
  1. DOXEPIN [Concomitant]
     Indication: ANXIETY
     Dosage: 2 CAPSULES DAILY
  2. ZOLOFT [Concomitant]
     Indication: ANXIETY
     Dosage: 100 MG, UNK
  3. DIOVAN [Concomitant]
     Indication: BLOOD PRESSURE ABNORMAL
     Dosage: 8 MG, UNK
  4. TOPROL-XL [Concomitant]
     Indication: BLOOD PRESSURE ABNORMAL
     Dosage: 100 MG, UNK
  5. ZOCOR [Concomitant]
     Indication: BLOOD CHOLESTEROL INCREASED
     Dosage: 40 MG, UNK
  6. ALPRAZOLAM [Suspect]
     Indication: ANXIETY
     Dosage: 1 MG IN THE MORNING, 1 MG IN THE EVENING AND TWO DOSES OF 1MG IN THE NIGHT (AS NEEDED)
     Dates: start: 20110901
  7. SYNTHROID [Concomitant]
     Indication: THYROID DISORDER
     Dosage: 75 UG, UNK
  8. COUMADIN [Concomitant]
     Indication: ANTICOAGULANT THERAPY
     Dosage: 5 MG, UNK
  9. ALDACTONE [Concomitant]
     Indication: BLOOD POTASSIUM ABNORMAL
     Dosage: 25 MG, UNK

REACTIONS (5)
  - DRUG INEFFECTIVE [None]
  - HEADACHE [None]
  - FEELING ABNORMAL [None]
  - MALAISE [None]
  - ANXIETY [None]
